FAERS Safety Report 5258954-X (Version None)
Quarter: 2007Q1

REPORT INFORMATION
  Report Type: 
  Country: None (occurrence: None)
  Receive Date: 20061217
  Receipt Date: 20051028
  Transmission Date: 20070707
  Serious: Yes (Hospitalization)
  Sender: FDA-Public Use
  Company Number: US-JNJFOC-20051100128

PATIENT
  Age: 20 Year
  Sex: Female

DRUGS (2)
  1. LEVAQUIN [Suspect]
     Indication: SINUSITIS
     Dosage: 500 MG, 1 IN 1 DAY
     Dates: start: 20051017, end: 20051024
  2. GUAIFENESIN [Concomitant]

REACTIONS (1)
  - ANAPHYLACTIC REACTION [None]
